FAERS Safety Report 8844215 (Version 1)
Quarter: 2012Q4

REPORT INFORMATION
  Report Type: 
  Country: CA (occurrence: CA)
  Receive Date: 20121016
  Receipt Date: 20121016
  Transmission Date: 20130627
  Serious: Yes (Hospitalization)
  Sender: FDA-Public Use
  Company Number: CA-B.I. PHARMACEUTICALS,INC./RIDGEFIELD-2012-CN-02095CN

PATIENT
  Age: 80 Year
  Sex: Female

DRUGS (1)
  1. PRADAX [Suspect]
     Indication: ATRIAL FIBRILLATION

REACTIONS (4)
  - Pneumonia [Unknown]
  - Haemoglobin decreased [Unknown]
  - Haematochezia [Unknown]
  - Thrombosis [Unknown]
